FAERS Safety Report 4487205-9 (Version None)
Quarter: 2004Q4

REPORT INFORMATION
  Report Type: 
  Country: None (occurrence: None)
  Receive Date: 20041022
  Receipt Date: 20041013
  Transmission Date: 20050328
  Serious: Yes (Hospitalization)
  Sender: FDA-Public Use
  Company Number: 2004238293JP

PATIENT
  Age: 67 Year
  Sex: Male

DRUGS (2)
  1. CLINDAMYCIN HCL [Suspect]
     Dosage: IV
     Route: 042
  2. DALACIN CAPSULES (CLINDAMYCIN) [Suspect]
     Indication: CELLULITIS
     Dosage: 4 DF ORAL
     Route: 048

REACTIONS (4)
  - CELLULITIS [None]
  - CONDITION AGGRAVATED [None]
  - ENTEROCOLITIS [None]
  - EXANTHEM [None]
